FAERS Safety Report 7074813-4 (Version None)
Quarter: 2010Q4

REPORT INFORMATION
  Report Type: 
  Country: None (occurrence: None)
  Receive Date: 20101029
  Receipt Date: 20101026
  Transmission Date: 20110411
  Serious: Yes (Death)
  Sender: FDA-Public Use
  Company Number: ZA-B.I. PHARMACEUTICALS,INC./RIDGEFIELD-2010-ZA-00176ZA

PATIENT
  Sex: Male

DRUGS (1)
  1. TIPRANAVIR [Suspect]
     Dates: start: 20100301, end: 20101013

REACTIONS (2)
  - ACQUIRED IMMUNODEFICIENCY SYNDROME [None]
  - GENERAL PHYSICAL HEALTH DETERIORATION [None]
